FAERS Safety Report 5757900-X (Version None)
Quarter: 2008Q2

REPORT INFORMATION
  Report Type: 
  Country: None (occurrence: None)
  Receive Date: 20080603
  Receipt Date: 20080603
  Transmission Date: 20081010
  Serious: Yes (Death)
  Sender: FDA-Public Use
  Company Number: None

PATIENT
  Age: 68 Year
  Sex: Male
  Weight: 72.5755 kg

DRUGS (1)
  1. DIGOXIN [Suspect]
     Indication: ARRHYTHMIA
     Dosage: .25MG 1 DAILY ORAL 047
     Route: 048
     Dates: start: 20080402

REACTIONS (4)
  - ANURIA [None]
  - ASTHENIA [None]
  - CONFUSIONAL STATE [None]
  - INCOHERENT [None]
